FAERS Safety Report 21910533 (Version 1)
Quarter: 2023Q1

REPORT INFORMATION
  Report Type: Report from Study
  Country: CH (occurrence: CH)
  Receive Date: 20230125
  Receipt Date: 20230125
  Transmission Date: 20230417
  Serious: Yes (Death, Hospitalization)
  Sender: FDA-Public Use
  Company Number: CH-JNJFOC-20220660937

PATIENT
  Age: 72 Year
  Sex: Male
  Weight: 78.2 kg

DRUGS (4)
  1. TECLISTAMAB [Suspect]
     Active Substance: TECLISTAMAB
     Indication: Plasma cell myeloma
     Dosage: FIRST FULL DOSE GIVEN
     Route: 065
     Dates: end: 20220623
  2. BACTRIM [Concomitant]
     Active Substance: SULFAMETHOXAZOLE\TRIMETHOPRIM
     Indication: Prophylaxis
     Dosage: 800/160 MG
     Route: 048
  3. VALTREX [Concomitant]
     Active Substance: VALACYCLOVIR HYDROCHLORIDE
     Indication: Prophylaxis
     Route: 048
  4. LEUCOVORIN [Concomitant]
     Active Substance: LEUCOVORIN
     Indication: Vitamin supplementation
     Route: 048

REACTIONS (2)
  - Cardio-respiratory arrest [Fatal]
  - Nervous system disorder [Recovered/Resolved with Sequelae]

NARRATIVE: CASE EVENT DATE: 20220625
